FAERS Safety Report 10471027 (Version 1)
Quarter: 2014Q3

REPORT INFORMATION
  Report Type: Spontaneous
  Country: US (occurrence: None)
  Receive Date: 20140917
  Receipt Date: 20140917
  Transmission Date: 20150326
  Serious: No
  Sender: FDA-Public Use
  Company Number: 2014CT000118

PATIENT
  Age: 50 Year
  Sex: Female

DRUGS (19)
  1. CILOSTAZOL. [Concomitant]
     Active Substance: CILOSTAZOL
  2. GLIMEPERIDE [Concomitant]
     Active Substance: GLIMEPIRIDE
  3. CYCLOSET [Concomitant]
     Active Substance: BROMOCRIPTINE MESYLATE
  4. NOVOLOG [Concomitant]
     Active Substance: INSULIN ASPART
  5. CRESTOR [Concomitant]
     Active Substance: ROSUVASTATIN CALCIUM
  6. LEVEMIR [Concomitant]
     Active Substance: INSULIN DETEMIR
  7. ATIVAN [Concomitant]
     Active Substance: LORAZEPAM
  8. AMLODIPINE [Concomitant]
     Active Substance: AMLODIPINE BESYLATE
  9. LANSOPRAZOLE. [Concomitant]
     Active Substance: LANSOPRAZOLE
  10. LITHYRONINE [Concomitant]
  11. DEXILANT [Concomitant]
     Active Substance: DEXLANSOPRAZOLE
  12. METOPROLOL [Concomitant]
     Active Substance: METOPROLOL
  13. ZOFRAN [Concomitant]
     Active Substance: ONDANSETRON HYDROCHLORIDE
  14. LEVOTHYROXINE [Concomitant]
     Active Substance: LEVOTHYROXINE
  15. PLAVIX [Concomitant]
     Active Substance: CLOPIDOGREL BISULFATE
  16. LOSARTAN [Concomitant]
     Active Substance: LOSARTAN
  17. LOSARTAN [Concomitant]
     Active Substance: LOSARTAN
  18. CARBAMAZEPINE. [Concomitant]
     Active Substance: CARBAMAZEPINE
  19. KORLYM [Suspect]
     Active Substance: MIFEPRISTONE
     Indication: CUSHING^S SYNDROME
     Route: 048
     Dates: start: 20140701

REACTIONS (4)
  - Local swelling [None]
  - Pain [None]
  - Influenza like illness [None]
  - Joint swelling [None]

NARRATIVE: CASE EVENT DATE: 2014
